FAERS Safety Report 24706315 (Version 2)
Quarter: 2025Q2

REPORT INFORMATION
  Report Type: Report from Study
  Country: AU (occurrence: AU)
  Receive Date: 20241206
  Receipt Date: 20250520
  Transmission Date: 20250717
  Serious: Yes (Hospitalization, Other)
  Sender: EMD SERONO INC
  Company Number: AU-Merck Healthcare KGaA-2024063529

PATIENT
  Sex: Female

DRUGS (2)
  1. MAVENCLAD [Suspect]
     Active Substance: CLADRIBINE
     Indication: Multiple sclerosis
  2. MAVENCLAD [Suspect]
     Active Substance: CLADRIBINE

REACTIONS (8)
  - Infection [Unknown]
  - Loss of consciousness [Unknown]
  - General physical health deterioration [Unknown]
  - Gait disturbance [Unknown]
  - Balance disorder [Unknown]
  - Anal incontinence [Unknown]
  - Urinary incontinence [Unknown]
  - Cognitive disorder [Unknown]
